FAERS Safety Report 8712773 (Version 2)
Quarter: 2012Q4

REPORT INFORMATION
  Report Type: 
  Country: BR (occurrence: BR)
  Receive Date: 20120808
  Receipt Date: 20120912
  Transmission Date: 20130627
  Serious: Yes (Congenital Anomaly)
  Sender: FDA-Public Use
  Company Number: BR-ASTRAZENECA-2012SE54564

PATIENT
  Age: 0 Month

DRUGS (2)
  1. ATACAND HCT [Suspect]
     Indication: HYPERTENSION
     Dosage: 16/12.5 MG
     Route: 064
     Dates: start: 2010, end: 201201
  2. CONCOR [Concomitant]
     Indication: HYPERTENSION
     Route: 064
     Dates: end: 201201

REACTIONS (1)
  - Foetal growth restriction [Unknown]
